FAERS Safety Report 9973898 (Version 1)
Quarter: 2014Q1

REPORT INFORMATION
  Report Type: Spontaneous
  Country: US (occurrence: US)
  Receive Date: 20140306
  Receipt Date: 20140306
  Transmission Date: 20141002
  Serious: Yes (Other)
  Sender: FDA-Public Use
  Company Number: US-BAYER-2014-031903

PATIENT
  Age: 36 Year
  Sex: Female

DRUGS (2)
  1. ACETYLSALICYLIC ACID (} 100 MG) [Suspect]
     Indication: ANTIPHOSPHOLIPID SYNDROME
     Route: 048
  2. ENOXAPARIN [Concomitant]
     Indication: ANTIPHOSPHOLIPID SYNDROME
     Dosage: 1 MG/KG, BID
     Route: 058

REACTIONS (7)
  - Maternal exposure during pregnancy [None]
  - Thrombosis [None]
  - Foetal placental thrombosis [None]
  - Ovarian necrosis [None]
  - Pancreatic infarction [None]
  - Hepatic infarction [None]
  - Stillbirth [None]
